FAERS Safety Report 16977650 (Version 1)
Quarter: 2019Q4

REPORT INFORMATION
  Report Type: Spontaneous
  Country: PT (occurrence: PT)
  Receive Date: 20191031
  Receipt Date: 20191031
  Transmission Date: 20200122
  Serious: Yes (Other)
  Sender: FDA-Public Use
  Company Number: PT-009507513-1910PRT013760

PATIENT
  Age: 36 Year
  Sex: Female

DRUGS (1)
  1. IMPLANON NXT [Suspect]
     Active Substance: ETONOGESTREL
     Indication: CONTRACEPTIVE IMPLANT
     Dosage: 68 MILLIGRAM, 3 YEARS; CONTRACEPTION
     Route: 058
     Dates: start: 20140807, end: 20161013

REACTIONS (3)
  - Galactorrhoea [Recovered/Resolved]
  - Abnormal weight gain [Unknown]
  - Amenorrhoea [Recovered/Resolved]
